FAERS Safety Report 5474436-4 (Version None)
Quarter: 2007Q4

REPORT INFORMATION
  Report Type: 
  Country: None (occurrence: None)
  Receive Date: 20071002
  Receipt Date: 20070918
  Transmission Date: 20080405
  Serious: Yes (Other)
  Sender: FDA-Public Use
  Company Number: PHHO2007NL15467

PATIENT
  Age: 79 Year
  Sex: Female

DRUGS (2)
  1. BETA BLOCKING AGENTS [Concomitant]
  2. VALSARTAN [Suspect]
     Indication: HYPERTENSION
     Dosage: 320 MG, QD
     Dates: start: 20070605

REACTIONS (2)
  - DIZZINESS [None]
  - SYNCOPE [None]
